FAERS Safety Report 7825058-9 (Version None)
Quarter: 2011Q4

REPORT INFORMATION
  Report Type: 
  Country: None (occurrence: None)
  Receive Date: 20111019
  Receipt Date: 20110504
  Transmission Date: 20120403
  Serious: No
  Sender: FDA-Public Use
  Company Number: US-BRISTOL-MYERS SQUIBB COMPANY-15721400

PATIENT
  Age: 64 Year
  Sex: Female

DRUGS (2)
  1. AVALIDE [Suspect]
  2. LISINOPRIL [Suspect]

REACTIONS (3)
  - OEDEMA PERIPHERAL [None]
  - BACK PAIN [None]
  - COUGH [None]
